FAERS Safety Report 8165525-4 (Version None)
Quarter: 2012Q1

REPORT INFORMATION
  Report Type: 
  Country: None (occurrence: None)
  Receive Date: 20120227
  Receipt Date: 20120217
  Transmission Date: 20120608
  Serious: Yes (Other)
  Sender: FDA-Public Use
  Company Number: US-US-EMD SERONO, INC.-7114611

PATIENT
  Sex: Female

DRUGS (1)
  1. REBIF [Suspect]
     Indication: PRODUCT USED FOR UNKNOWN INDICATION
     Route: 058
     Dates: start: 20040201

REACTIONS (8)
  - INJECTION SITE ERYTHEMA [None]
  - CATARACT OPERATION [None]
  - FAECAL INCONTINENCE [None]
  - INJECTION SITE EXTRAVASATION [None]
  - ATRIAL FIBRILLATION [None]
  - DYSSTASIA [None]
  - URINARY INCONTINENCE [None]
  - DIABETES MELLITUS [None]
